FAERS Safety Report 7916651-3 (Version None)
Quarter: 2011Q4

REPORT INFORMATION
  Report Type: 
  Country: None (occurrence: None)
  Receive Date: 20111116
  Receipt Date: 20111102
  Transmission Date: 20120403
  Serious: Yes (Other)
  Sender: FDA-Public Use
  Company Number: GB-ELI_LILLY_AND_COMPANY-GB201111000490

PATIENT
  Age: 58 Year
  Sex: Female
  Weight: 82.55 kg

DRUGS (8)
  1. OVESTIN [Concomitant]
  2. AMLODIPINE [Concomitant]
  3. LEVOTHYROXINE SODIUM [Concomitant]
  4. PERINDOPRIL ERBUMINE [Concomitant]
  5. DULOXETIME HYDROCHLORIDE [Suspect]
     Indication: URINARY INCONTINENCE
     Dosage: 40 MG, BID
     Route: 048
     Dates: start: 20110824
  6. PERSANTIN [Concomitant]
  7. OMEPRAZOLE [Concomitant]
  8. SIMVASTATIN [Concomitant]

REACTIONS (9)
  - ABDOMINAL PAIN [None]
  - DECREASED APPETITE [None]
  - NAUSEA [None]
  - TREMOR [None]
  - VERTIGO [None]
  - MIGRAINE [None]
  - VISUAL IMPAIRMENT [None]
  - VOMITING [None]
  - HOT FLUSH [None]
